FAERS Safety Report 7968270-0 (Version None)
Quarter: 2011Q4

REPORT INFORMATION
  Report Type: 
  Country: None (occurrence: None)
  Receive Date: 20111209
  Receipt Date: 20111206
  Transmission Date: 20120403
  Serious: Yes (Death)
  Sender: FDA-Public Use
  Company Number: PHHY2011DE85785

PATIENT
  Sex: Female
  Weight: 55 kg

DRUGS (1)
  1. SANDOSTATIN LAR [Suspect]
     Indication: NEUROENDOCRINE TUMOUR
     Dosage: 30 MG,  EVERY MONTH
     Route: 030
     Dates: start: 20100401, end: 20110909

REACTIONS (1)
  - CARDIAC FAILURE [None]
